FAERS Safety Report 4345670-1 (Version None)
Quarter: 2004Q2

REPORT INFORMATION
  Report Type: 
  Country: None (occurrence: None)
  Receive Date: 20040421
  Receipt Date: 20040412
  Transmission Date: 20050107
  Serious: Yes (Hospitalization)
  Sender: FDA-Public Use
  Company Number: 2003159317US

PATIENT
  Age: 56 Year
  Sex: Female
  Weight: 59 kg

DRUGS (1)
  1. BEXTRA [Suspect]
     Indication: BONE EROSION
     Dosage: 10 MG, QD, ORAL
     Route: 048
     Dates: start: 20030430, end: 20030509

REACTIONS (4)
  - ANAEMIA [None]
  - ERYTHEMA MULTIFORME [None]
  - LYMPHOMA [None]
  - METASTATIC NEOPLASM [None]
